FAERS Safety Report 7405294-6 (Version None)
Quarter: 2011Q2

REPORT INFORMATION
  Report Type: 
  Country: None (occurrence: None)
  Receive Date: 20110411
  Receipt Date: 20110328
  Transmission Date: 20111010
  Serious: Yes (Hospitalization)
  Sender: FDA-Public Use
  Company Number: PHHY2011DE07809

PATIENT
  Sex: Male
  Weight: 76 kg

DRUGS (1)
  1. TASIGNA [Suspect]
     Indication: CHRONIC MYELOID LEUKAEMIA
     Dosage: 400 MG, BID
     Route: 048
     Dates: start: 20101219, end: 20110106

REACTIONS (8)
  - ERYTHEMA [None]
  - VASCULITIS NECROTISING [None]
  - SKIN NECROSIS [None]
  - PRURITUS [None]
  - GENITAL LESION [None]
  - MALAISE [None]
  - RASH [None]
  - BLISTER [None]
